FAERS Safety Report 4961875-0 (Version None)
Quarter: 2006Q1

REPORT INFORMATION
  Report Type: 
  Country: None (occurrence: None)
  Receive Date: 20060329
  Receipt Date: 20060320
  Transmission Date: 20060701
  Serious: Yes (Other)
  Sender: FDA-Public Use
  Company Number: 2006013571

PATIENT
  Age: 19 Year
  Sex: Female

DRUGS (2)
  1. BENADRYL [Suspect]
     Indication: SLEEP DISORDER
     Dosage: 3 TABLETS ONCE, TOPICAL
     Route: 061
     Dates: start: 20060205, end: 20060205
  2. ETHANOL (ETHANOL) [Suspect]
     Dosage: ORAL
     Route: 048

REACTIONS (4)
  - ALCOHOL USE [None]
  - LOSS OF CONSCIOUSNESS [None]
  - POOR QUALITY DRUG ADMINISTERED [None]
  - SOMNOLENCE [None]
